FAERS Safety Report 23473651 (Version 1)
Quarter: 2024Q1

REPORT INFORMATION
  Report Type: Spontaneous
  Country: US (occurrence: US)
  Receive Date: 20240203
  Receipt Date: 20240203
  Transmission Date: 20240410
  Serious: No
  Sender: FDA-Public Use
  Company Number: US-Accord-392336

PATIENT
  Age: 90 Year
  Sex: Female
  Weight: 51.26 kg

DRUGS (1)
  1. FLUOROURACIL [Suspect]
     Active Substance: FLUOROURACIL
     Indication: Skin lesion
     Route: 061
     Dates: start: 20231015

REACTIONS (7)
  - Facial pain [Unknown]
  - Scar [Unknown]
  - Vision blurred [Recovered/Resolved]
  - Diarrhoea [Unknown]
  - Cheilitis [Recovering/Resolving]
  - Dysphonia [Unknown]
  - Swollen tongue [Unknown]

NARRATIVE: CASE EVENT DATE: 20231001
